FAERS Safety Report 10890955 (Version 3)
Quarter: 2015Q1

REPORT INFORMATION
  Report Type: Spontaneous
  Country: IL (occurrence: IL)
  Receive Date: 20150305
  Receipt Date: 20150318
  Transmission Date: 20150721
  Serious: Yes (Other)
  Sender: FDA-Public Use
  Company Number: IL-PFIZER INC-2014166499

PATIENT
  Age: 58 Year
  Sex: Male

DRUGS (7)
  1. SUTENT [Suspect]
     Active Substance: SUNITINIB MALATE
     Indication: RENAL CELL CARCINOMA
     Dosage: 50 MG, 1X/DAY,CYCLE NUMBER AND CUMULAITVE DOSE WERE HARD TO ESTIMATE
     Route: 048
     Dates: start: 20130701
  2. ELTROXIN [Concomitant]
     Active Substance: LEVOTHYROXINE
  3. ZOFRAN [Concomitant]
     Active Substance: ONDANSETRON HYDROCHLORIDE
  4. GAVISCON [Concomitant]
     Active Substance: ALUMINUM HYDROXIDE\MAGNESIUM CARBONATE
  5. GASTRO [Concomitant]
  6. STOPIT [Concomitant]
  7. NORMITEN [Concomitant]
     Active Substance: ATENOLOL

REACTIONS (23)
  - Vomiting [Recovered/Resolved]
  - Diarrhoea [Recovering/Resolving]
  - Pain of skin [Unknown]
  - Musculoskeletal pain [Recovering/Resolving]
  - Oesophageal stenosis [Unknown]
  - Disease progression [Unknown]
  - Haemoglobin decreased [Not Recovered/Not Resolved]
  - Erythema [Recovered/Resolved]
  - Dry skin [Unknown]
  - Skin papilloma [Not Recovered/Not Resolved]
  - Skin hypertrophy [Not Recovered/Not Resolved]
  - Cough [Unknown]
  - Renal cell carcinoma [Unknown]
  - Skin exfoliation [Unknown]
  - Nausea [Recovering/Resolving]
  - Asthenia [Recovering/Resolving]
  - Blood pressure increased [Unknown]
  - Abdominal pain upper [Recovering/Resolving]
  - Dyspepsia [Recovered/Resolved]
  - Blood thyroid stimulating hormone increased [Unknown]
  - White blood cell count decreased [Not Recovered/Not Resolved]
  - Pain of skin [Not Recovered/Not Resolved]
  - Pain in extremity [Unknown]
